FAERS Safety Report 21920748 (Version 6)
Quarter: 2025Q4

REPORT INFORMATION
  Report Type: Spontaneous
  Country: EU (occurrence: EU)
  Receive Date: 20230127
  Receipt Date: 20251023
  Transmission Date: 20260117
  Serious: Yes (Death, Hospitalization)
  Sender: JOHNSON AND JOHNSON
  Company Number: EU-JNJFOC-20230134993

PATIENT
  Age: 67 Year
  Sex: Male
  Weight: 76 kg

DRUGS (2)
  1. TECLISTAMAB [Suspect]
     Active Substance: TECLISTAMAB
     Indication: Plasma cell myeloma refractory
     Route: 065
     Dates: end: 20221229
  2. TECLISTAMAB [Suspect]
     Active Substance: TECLISTAMAB
     Dosage: FIRST ADMINISTRATION
     Route: 065
     Dates: start: 20220828

REACTIONS (3)
  - Plasma cell myeloma [Fatal]
  - Cardio-respiratory arrest [Unknown]
  - Septic shock [Unknown]
